FAERS Safety Report 7091395-1 (Version None)
Quarter: 2010Q4

REPORT INFORMATION
  Report Type: 
  Country: None (occurrence: None)
  Receive Date: 20101109
  Receipt Date: 20101102
  Transmission Date: 20110411
  Serious: Yes (Death)
  Sender: FDA-Public Use
  Company Number: A0891272A

PATIENT
  Age: 55 Year
  Sex: Male
  Weight: 81.8 kg

DRUGS (2)
  1. PAROXETINE HCL [Suspect]
     Route: 065
  2. OLANZAPINE [Suspect]
     Route: 065

REACTIONS (6)
  - CARDIAC DISORDER [None]
  - DIARRHOEA [None]
  - DRUG LEVEL INCREASED [None]
  - HYPERTHERMIA [None]
  - ILL-DEFINED DISORDER [None]
  - UNRESPONSIVE TO STIMULI [None]
